FAERS Safety Report 11486821 (Version 7)
Quarter: 2017Q1

REPORT INFORMATION
  Report Type: Spontaneous
  Country: US (occurrence: US)
  Receive Date: 20150910
  Receipt Date: 20170119
  Transmission Date: 20170428
  Serious: Yes (Other)
  Sender: FDA-Public Use
  Company Number: US-PFIZER INC-2015293128

PATIENT
  Age: 60 Year
  Sex: Male
  Weight: 97 kg

DRUGS (17)
  1. HYDROCHLOROTHIAZIDE. [Concomitant]
     Active Substance: HYDROCHLOROTHIAZIDE
     Indication: BLOOD PRESSURE ABNORMAL
     Dosage: 25 MG, PER DAY
     Route: 048
     Dates: start: 2010
  2. LYRICA [Suspect]
     Active Substance: PREGABALIN
     Dosage: 150 MG 5 TIMES A DAY
     Route: 048
     Dates: start: 2010
  3. LYRICA [Suspect]
     Active Substance: PREGABALIN
     Indication: COMPLEX REGIONAL PAIN SYNDROME
     Dosage: 450 MG TO 600 MG PER DAY
     Route: 048
  4. IMIPRAMINE [Concomitant]
     Active Substance: IMIPRAMINE
     Indication: DEPRESSION
     Dosage: 110 TO 150 MG PER DAY
     Route: 048
  5. TYLENOL [Concomitant]
     Active Substance: ACETAMINOPHEN
     Dosage: 1000 MG, UNK (2-3 X /DAY)
     Route: 048
     Dates: start: 1976
  6. IMIPRAMINE HCL [Concomitant]
     Active Substance: IMIPRAMINE HYDROCHLORIDE
     Dosage: 50 MG, UNK (2-3X/ DAY)
     Route: 048
  7. OMEGA 3 [Concomitant]
     Active Substance: OMEGA-3 FATTY ACIDS
     Dosage: UNK
     Route: 048
  8. LYRICA [Suspect]
     Active Substance: PREGABALIN
     Dosage: 150 MG, 5-6X/DAY
     Route: 048
  9. LYRICA [Suspect]
     Active Substance: PREGABALIN
     Dosage: 150 MG, 1X/DAY
     Route: 048
  10. LYRICA [Suspect]
     Active Substance: PREGABALIN
     Indication: NEURALGIA
     Dosage: 150 MG, UNK
     Route: 048
     Dates: start: 2005
  11. IMIPRAMINE [Concomitant]
     Active Substance: IMIPRAMINE
     Indication: NEURALGIA
     Dosage: 50 MG, 3X/DAY
     Route: 048
     Dates: start: 2010
  12. METOPROLOL. [Concomitant]
     Active Substance: METOPROLOL
     Indication: HYPERTENSION
     Dosage: 50 MG, 1X/DAY
     Route: 048
     Dates: start: 2010
  13. IBUPROFEN. [Concomitant]
     Active Substance: IBUPROFEN
     Dosage: 800 MG, 2-3 X DAY
     Route: 048
     Dates: start: 1976
  14. ASPIRIN. [Concomitant]
     Active Substance: ASPIRIN
     Dosage: 1000 MG, 1-2 X /DAY
     Route: 048
     Dates: start: 1976
  15. LYRICA [Suspect]
     Active Substance: PREGABALIN
     Dosage: 150 MG 5 TIMES A DAY
     Route: 048
     Dates: start: 2010
  16. LYRICA [Suspect]
     Active Substance: PREGABALIN
     Dosage: 150 MG, 4X/DAY
     Route: 048
  17. HUPERZINE A [Concomitant]
     Active Substance: HUPERZINE A
     Dosage: UNK
     Route: 048

REACTIONS (17)
  - Swelling [Unknown]
  - Feeling abnormal [Not Recovered/Not Resolved]
  - Oedema [Unknown]
  - Cognitive disorder [Unknown]
  - Gait disturbance [Unknown]
  - Therapeutic response unexpected [Unknown]
  - Condition aggravated [Unknown]
  - Drug effect incomplete [Not Recovered/Not Resolved]
  - Overdose [Unknown]
  - Memory impairment [Unknown]
  - Weight increased [Unknown]
  - Pre-existing condition improved [Unknown]
  - Nasopharyngitis [Not Recovered/Not Resolved]
  - Sinusitis [Not Recovered/Not Resolved]
  - Suicidal ideation [Unknown]
  - Drug dependence [Unknown]
  - Neuralgia [Unknown]

NARRATIVE: CASE EVENT DATE: 2010
